FAERS Safety Report 6453377-X (Version None)
Quarter: 2009Q4

REPORT INFORMATION
  Report Type: 
  Country: None (occurrence: None)
  Receive Date: 20091117
  Receipt Date: 20091106
  Transmission Date: 20100525
  Serious: Yes (Death)
  Sender: FDA-Public Use
  Company Number: IDA-00284

PATIENT
  Age: 23 Year
  Sex: Female

DRUGS (1)
  1. PROPRANOLOL [Suspect]
     Dosage: LETHAL DOSE

REACTIONS (4)
  - CARDIAC ARREST [None]
  - DRUG TOXICITY [None]
  - HYPOGLYCAEMIC COMA [None]
  - OVERDOSE [None]
